FAERS Safety Report 5622074-2 (Version None)
Quarter: 2008Q1

REPORT INFORMATION
  Report Type: 
  Country: None (occurrence: None)
  Receive Date: 20080211
  Receipt Date: 20080207
  Transmission Date: 20080703
  Serious: Yes (Other)
  Sender: FDA-Public Use
  Company Number: US-MERCK-0801USA03119

PATIENT
  Age: 74 Year
  Sex: Male
  Weight: 100 kg

DRUGS (9)
  1. JANUMET [Suspect]
     Indication: TYPE 2 DIABETES MELLITUS
     Route: 048
     Dates: start: 20070601
  2. AVANDIA [Concomitant]
     Route: 065
  3. LOPRESSOR [Concomitant]
     Indication: CORONARY ARTERY DISEASE
     Route: 048
  4. PLAVIX [Concomitant]
     Indication: CORONARY ARTERY DISEASE
     Route: 048
     Dates: start: 20070101
  5. PRAVACHOL [Concomitant]
     Indication: CORONARY ARTERY DISEASE
     Route: 048
  6. PRAVACHOL [Concomitant]
     Indication: BLOOD CHOLESTEROL INCREASED
     Route: 048
  7. ZETIA [Concomitant]
     Indication: CORONARY ARTERY DISEASE
     Route: 048
     Dates: start: 20070101
  8. ZETIA [Concomitant]
     Indication: BLOOD CHOLESTEROL INCREASED
     Route: 048
     Dates: start: 20070101
  9. DICYCLOMINE HYDROCHLORIDE [Concomitant]
     Indication: DIARRHOEA
     Route: 048

REACTIONS (3)
  - FALL [None]
  - HEAD INJURY [None]
  - HYPOGLYCAEMIA [None]
